FAERS Safety Report 6029823-2 (Version None)
Quarter: 2008Q4

REPORT INFORMATION
  Report Type: 
  Country: None (occurrence: None)
  Receive Date: 20081222
  Receipt Date: 20080919
  Transmission Date: 20090506
  Serious: No
  Sender: FDA-Public Use
  Company Number: US-WYE-H06069408

PATIENT
  Age: 50 Year
  Sex: Female
  Weight: 95.79 kg

DRUGS (5)
  1. PRISTIQ [Suspect]
     Indication: DEPRESSION
     Dosage: 50 MG 1X PER 1 DAY,ORAL
     Route: 048
     Dates: start: 20080903
  2. LIPITOR [Concomitant]
  3. DIOVAN [Concomitant]
  4. ETODOLAC [Concomitant]
  5. PREVACID [Concomitant]

REACTIONS (1)
  - MYALGIA [None]
